FAERS Safety Report 8170646-6 (Version None)
Quarter: 2012Q1

REPORT INFORMATION
  Report Type: 
  Country: None (occurrence: None)
  Receive Date: 20120228
  Receipt Date: 20120220
  Transmission Date: 20120608
  Serious: Yes (Hospitalization)
  Sender: FDA-Public Use
  Company Number: DE-TEVA-290702GER

PATIENT
  Sex: Female

DRUGS (4)
  1. SULTIAME [Concomitant]
     Indication: CONVULSION
  2. PYRIDOXINE HCL [Concomitant]
     Indication: PARTIAL SEIZURES
  3. PHENOBARBITAL TAB [Concomitant]
     Indication: PARTIAL SEIZURES
  4. VALPROIC ACID [Suspect]
     Indication: CONVULSION NEONATAL

REACTIONS (3)
  - RHABDOMYOLYSIS [None]
  - CONDITION AGGRAVATED [None]
  - RESPIRATORY FAILURE [None]
